FAERS Safety Report 4763382-7 (Version None)
Quarter: 2005Q3

REPORT INFORMATION
  Report Type: 
  Country: None (occurrence: None)
  Receive Date: 20050902
  Receipt Date: 20050825
  Transmission Date: 20060218
  Serious: Yes (Hospitalization, Other)
  Sender: FDA-Public Use
  Company Number: TPA2005A00976

PATIENT
  Age: 76 Year
  Sex: Male

DRUGS (4)
  1. ACTOS [Suspect]
     Indication: DIABETES MELLITUS
     Dosage: PER ORAL
     Route: 048
     Dates: start: 19970101, end: 20050501
  2. LIPITOR [Suspect]
     Dates: end: 20050501
  3. ATHROTEC (ATHROTEC) [Concomitant]
  4. PLAVIX [Concomitant]

REACTIONS (5)
  - ARTHRALGIA [None]
  - DIABETES MELLITUS INADEQUATE CONTROL [None]
  - DRUG EFFECT DECREASED [None]
  - PROSTATIC DISORDER [None]
  - SLUGGISHNESS [None]
